FAERS Safety Report 5851451-X (Version None)
Quarter: 2008Q3

REPORT INFORMATION
  Report Type: 
  Country: None (occurrence: None)
  Receive Date: 20080731
  Receipt Date: 20080502
  Transmission Date: 20090109
  Serious: No
  Sender: FDA-Public Use
  Company Number: US200706004259

PATIENT
  Age: 73 Year
  Sex: Male
  Weight: 93 kg

DRUGS (16)
  1. BYETTA [Suspect]
     Indication: TYPE 2 DIABETES MELLITUS
     Dosage: 5 UG, 2/D, SUBCUTANEOUS ; 10 UG, 2/D, SUBCUTANEOUS
     Route: 058
     Dates: start: 20070219
  2. BYETTA [Suspect]
     Indication: TYPE 2 DIABETES MELLITUS
     Dosage: 5 UG, 2/D, SUBCUTANEOUS ; 10 UG, 2/D, SUBCUTANEOUS
     Route: 058
     Dates: start: 20071101
  3. BYETTA [Suspect]
  4. METFORMIN HCL [Concomitant]
  5. TOPROL-XL [Concomitant]
  6. ASPIRIN [Concomitant]
  7. ZOCOR [Concomitant]
  8. ADVAIR DISKUS (FLUTICASONE PROPIONATE, SALMETEROL XINAFOATE) [Concomitant]
  9. FLONASE [Concomitant]
  10. ALBUTEROL [Concomitant]
  11. ALTACE [Concomitant]
  12. FISH OIL (FISH OIL) [Concomitant]
  13. MINERAL OIL EMULSION (MINERAL OIL EMULSION) [Concomitant]
  14. ALLEGRA [Concomitant]
  15. FLOMAX [Concomitant]
  16. SINGULAIR [Concomitant]

REACTIONS (12)
  - ANOREXIA [None]
  - ARTHRALGIA [None]
  - BLOOD GLUCOSE INCREASED [None]
  - DYSGEUSIA [None]
  - GLYCOSYLATED HAEMOGLOBIN INCREASED [None]
  - MUSCULOSKELETAL STIFFNESS [None]
  - MYALGIA [None]
  - NAUSEA [None]
  - PAIN IN EXTREMITY [None]
  - POLLAKIURIA [None]
  - WEIGHT DECREASED [None]
  - WEIGHT INCREASED [None]
